FAERS Safety Report 12601508 (Version 1)
Quarter: 2016Q3

REPORT INFORMATION
  Report Type: Spontaneous
  Country: US (occurrence: None)
  Receive Date: 20160727
  Receipt Date: 20160727
  Transmission Date: 20161109
  Serious: Yes (Disabling)
  Sender: FDA-Public Use
  Company Number: None

PATIENT
  Age: 54 Year
  Sex: Male
  Weight: 70.31 kg

DRUGS (3)
  1. BONIVA [Suspect]
     Active Substance: IBANDRONATE SODIUM
  2. ACTONEL [Suspect]
     Active Substance: RISEDRONATE SODIUM
     Indication: OSTEOPENIA
     Dates: start: 20020408, end: 20071023
  3. RECLAST [Suspect]
     Active Substance: ZOLEDRONIC ACID

REACTIONS (12)
  - Cardiovascular insufficiency [None]
  - Presyncope [None]
  - Bone pain [None]
  - Pain [None]
  - Headache [None]
  - Pain in extremity [None]
  - Dizziness [None]
  - Fear [None]
  - Neuralgia [None]
  - Hypoaesthesia [None]
  - Myalgia [None]
  - Inflammation [None]
